FAERS Safety Report 25970937 (Version 1)
Quarter: 2025Q4

REPORT INFORMATION
  Report Type: Spontaneous
  Country: US (occurrence: None)
  Receive Date: 20251028
  Receipt Date: 20251028
  Transmission Date: 20260119
  Serious: Yes (Disabling, Other)
  Sender: FDA-CTU
  Company Number: None

PATIENT
  Age: 34 Year
  Sex: Female

DRUGS (1)
  1. BENZONATATE [Suspect]
     Active Substance: BENZONATATE
     Indication: Cough
     Dosage: OTHER QUANTITY : 1 CAPSULE(S);?FREQUENCY : 3 TIMES A DAY;?
     Route: 048
     Dates: start: 20251023, end: 20251025

REACTIONS (10)
  - Musculoskeletal stiffness [None]
  - Musculoskeletal stiffness [None]
  - Throat tightness [None]
  - Muscle spasms [None]
  - Pain [None]
  - Dysphagia [None]
  - Anxiety [None]
  - Fear [None]
  - Job dissatisfaction [None]
  - Loss of personal independence in daily activities [None]

NARRATIVE: CASE EVENT DATE: 20251025
